FAERS Safety Report 5988219-X (Version None)
Quarter: 2008Q4

REPORT INFORMATION
  Report Type: 
  Country: None (occurrence: None)
  Receive Date: 20081204
  Receipt Date: 20081124
  Transmission Date: 20090506
  Serious: Yes (Other)
  Sender: FDA-Public Use
  Company Number: 2008EN000167

PATIENT
  Age: 70 Year
  Sex: Female

DRUGS (1)
  1. ABELCET [Suspect]
     Indication: DRUG USE FOR UNKNOWN INDICATION
     Dosage: 20 MG; IV
     Route: 042
     Dates: start: 20080101, end: 20080101

REACTIONS (7)
  - BRONCHOSPASM [None]
  - CHILLS [None]
  - DRUG ADMINISTRATION ERROR [None]
  - DYSPNOEA [None]
  - INFUSION RELATED REACTION [None]
  - TACHYCARDIA [None]
  - TACHYPNOEA [None]
